FAERS Safety Report 7898828-9 (Version None)
Quarter: 2011Q4

REPORT INFORMATION
  Report Type: 
  Country: None (occurrence: None)
  Receive Date: 20111104
  Receipt Date: 20111028
  Transmission Date: 20120403
  Serious: Yes (Hospitalization)
  Sender: FDA-Public Use
  Company Number: 2011S1006106

PATIENT
  Age: 70 Year
  Sex: Female

DRUGS (2)
  1. SODIUM PHOSPHATE MONOBASIC MONOHYDRATE AND NAPO4 DIBASIC ANHYDROUS [Suspect]
     Indication: CONSTIPATION
     Dosage: 15 ML; X1; PO
     Route: 048
     Dates: start: 20080101, end: 20080101
  2. MORPHINE [Concomitant]

REACTIONS (1)
  - DEHYDRATION [None]
